FAERS Safety Report 24132452 (Version 1)
Quarter: 2024Q3

REPORT INFORMATION
  Report Type: Spontaneous
  Country: CN (occurrence: CN)
  Receive Date: 20240724
  Receipt Date: 20240724
  Transmission Date: 20241016
  Serious: Yes (Life-Threatening)
  Sender: BAYER
  Company Number: CN-BAYER-2024A106383

PATIENT
  Age: 57 Year
  Sex: Female
  Weight: 72 kg

DRUGS (1)
  1. ULTRAVIST [Suspect]
     Active Substance: IOPROMIDE
     Indication: Computerised tomogram thorax
     Dosage: 30 G, ONCE
     Route: 042
     Dates: start: 20240628, end: 20240628

REACTIONS (10)
  - Anaphylactic shock [Recovering/Resolving]
  - Dizziness [None]
  - Altered state of consciousness [Recovered/Resolved]
  - Flushing [None]
  - Blood pressure decreased [None]
  - Heart rate decreased [None]
  - Depressed mood [None]
  - Respiratory rate increased [None]
  - Pupillary reflex impaired [None]
  - Breath sounds abnormal [None]

NARRATIVE: CASE EVENT DATE: 20240628
